FAERS Safety Report 8309038-5 (Version None)
Quarter: 2012Q2

REPORT INFORMATION
  Report Type: 
  Country: None (occurrence: None)
  Receive Date: 20120424
  Receipt Date: 20120418
  Transmission Date: 20120825
  Serious: Yes (Hospitalization)
  Sender: FDA-Public Use
  Company Number: IT-ELI_LILLY_AND_COMPANY-IT201204006929

PATIENT
  Sex: Female

DRUGS (1)
  1. HUMULIN R [Suspect]
     Indication: DIABETES MELLITUS
     Dosage: 26 DF, QD
     Route: 058
     Dates: start: 20050101

REACTIONS (3)
  - HYPOGLYCAEMIA [None]
  - FALL [None]
  - PRESYNCOPE [None]
